FAERS Safety Report 12930104 (Version 1)
Quarter: 2016Q4

REPORT INFORMATION
  Report Type: Spontaneous
  Country: US (occurrence: US)
  Receive Date: 20161110
  Receipt Date: 20161110
  Transmission Date: 20170207
  Serious: No
  Sender: FDA-Public Use
  Company Number: None

PATIENT
  Age: 44 Year
  Sex: Female
  Weight: 81.9 kg

DRUGS (1)
  1. MORPHINE SULFATE ER [Suspect]
     Active Substance: MORPHINE SULFATE
     Indication: PAIN
     Dosage: ?          QUANTITY:56 CAPSULE(S);?
     Route: 048
     Dates: start: 20160401, end: 20161031

REACTIONS (5)
  - Withdrawal syndrome [None]
  - Medication residue present [None]
  - Product quality issue [None]
  - Insomnia [None]
  - Product substitution issue [None]
